FAERS Safety Report 8903531 (Version 1)
Quarter: 2012Q4

REPORT INFORMATION
  Report Type: 
  Country: FR (occurrence: FR)
  Receive Date: 20121113
  Receipt Date: 20121113
  Transmission Date: 20130627
  Serious: Yes (Hospitalization)
  Sender: FDA-Public Use
  Company Number: FR-EISAI INC-E3810-06065-SPO-FR

PATIENT
  Age: 57 Year
  Sex: Female

DRUGS (8)
  1. PARIET (RABEPRAZOLE) [Suspect]
     Route: 048
     Dates: end: 20120805
  2. CELEBREX [Suspect]
     Route: 048
     Dates: end: 20120805
  3. COTAREG [Suspect]
     Route: 048
     Dates: end: 20120805
  4. STILNOX [Concomitant]
     Route: 048
  5. PRINCI-B [Concomitant]
     Route: 065
  6. SERESTA [Concomitant]
     Route: 065
  7. FUROSEMIDE [Concomitant]
     Route: 048
  8. FUROSEMIDE [Concomitant]
     Route: 042

REACTIONS (2)
  - Oedema [Unknown]
  - Hyponatraemia [Recovering/Resolving]
